FAERS Safety Report 7577130-9 (Version None)
Quarter: 2011Q2

REPORT INFORMATION
  Report Type: 
  Country: None (occurrence: None)
  Receive Date: 20110624
  Receipt Date: 20110624
  Transmission Date: 20111010
  Serious: No
  Sender: FDA-Public Use
  Company Number: None

PATIENT
  Age: 73 Year
  Sex: Female
  Weight: 77.1115 kg

DRUGS (1)
  1. LEVAQUIN [Suspect]
     Indication: DIVERTICULITIS
     Dosage: DAILY PO
     Route: 048
     Dates: start: 20100201, end: 20100210

REACTIONS (8)
  - ASTHENIA [None]
  - WALKING AID USER [None]
  - IMPAIRED WORK ABILITY [None]
  - TOXICITY TO VARIOUS AGENTS [None]
  - PAIN IN EXTREMITY [None]
  - LOSS OF CONTROL OF LEGS [None]
  - ARTHRALGIA [None]
  - ARTHRITIS [None]
